FAERS Safety Report 16323243 (Version 4)
Quarter: 2019Q3

REPORT INFORMATION
  Report Type: Report from Study
  Country: CO (occurrence: CO)
  Receive Date: 20190517
  Receipt Date: 20190905
  Transmission Date: 20191004
  Serious: Yes (Life-Threatening, Other)
  Sender: FDA-Public Use
  Company Number: CO-BRISTOL-MYERS SQUIBB COMPANY-BMS-2016-107432

PATIENT
  Age: 56 Year
  Sex: Female

DRUGS (1)
  1. ABATACEPT [Suspect]
     Active Substance: ABATACEPT
     Indication: RHEUMATOID ARTHRITIS
     Dosage: 125 MILLIGRAM, QWK
     Route: 058
     Dates: start: 20151101, end: 20190808

REACTIONS (11)
  - Gastrointestinal infection [Recovering/Resolving]
  - Psoriasis [Recovering/Resolving]
  - Dry skin [Recovering/Resolving]
  - Asthenia [Recovering/Resolving]
  - Pain [Recovering/Resolving]
  - Diarrhoea [Recovering/Resolving]
  - Macular degeneration [Recovering/Resolving]
  - Respiratory disorder [Recovering/Resolving]
  - Nausea [Recovering/Resolving]
  - Keratitis [Recovering/Resolving]
  - Urinary tract infection [Recovering/Resolving]

NARRATIVE: CASE EVENT DATE: 20190208
